FAERS Safety Report 9672137 (Version 1)
Quarter: 2013Q4

REPORT INFORMATION
  Report Type: Spontaneous
  Country: HU (occurrence: US)
  Receive Date: 20131106
  Receipt Date: 20131106
  Transmission Date: 20140711
  Serious: Yes (Other)
  Sender: FDA-Public Use
  Company Number: HU-BAYER-2013-135267

PATIENT
  Age: 80 Year
  Sex: Male

DRUGS (15)
  1. ACETYLSALICYLIC ACID({=100 MG) [Suspect]
  2. ROFLUMILAST [Suspect]
     Dosage: DAILY DOSE 500 ?G/D
     Route: 048
  3. WARFARIN [Suspect]
  4. BISMUTH [Suspect]
  5. TIOTROPIUM [Suspect]
  6. FAMOTIDINE [Concomitant]
  7. CALCIUM [Concomitant]
  8. ROSUVASTATIN [Concomitant]
  9. FLUOXETINE [Concomitant]
  10. CYANOCOBALAMIN [Concomitant]
  11. DIGOXIN [Concomitant]
  12. METOPROLOL [Concomitant]
  13. FLUTICASONE [Concomitant]
  14. FISH OIL [Concomitant]
  15. MAGNESIUM [Concomitant]

REACTIONS (3)
  - Melaena [None]
  - Nausea [None]
  - Dizziness [None]
